FAERS Safety Report 8592403 (Version 4)
Quarter: 2013Q4

REPORT INFORMATION
  Report Type: Spontaneous
  Country: JP (occurrence: JP)
  Receive Date: 20120601
  Receipt Date: 20131106
  Transmission Date: 20140711
  Serious: Yes (Hospitalization)
  Sender: FDA-Public Use
  Company Number: JP-009507513-1205USA05057

PATIENT
  Age: 71 Year
  Sex: Female

DRUGS (7)
  1. GLACTIV [Suspect]
     Indication: TYPE 2 DIABETES MELLITUS
     Dosage: 25 MG, QD
     Route: 048
     Dates: start: 20120505, end: 20120518
  2. SELEGILINE [Concomitant]
  3. BI SIFROL [Concomitant]
  4. MENESIT [Concomitant]
  5. AMLODIN OD [Concomitant]
  6. PURSENNID (SENNOSIDES) [Concomitant]
  7. CALONAL [Concomitant]

REACTIONS (1)
  - Ileus [Recovered/Resolved]
